FAERS Safety Report 6715730-6 (Version None)
Quarter: 2010Q2

REPORT INFORMATION
  Report Type: 
  Country: None (occurrence: None)
  Receive Date: 20100506
  Receipt Date: 20100506
  Transmission Date: 20101027
  Serious: Yes (Other)
  Sender: FDA-Public Use
  Company Number: None

PATIENT
  Sex: Female
  Weight: 21.3191 kg

DRUGS (1)
  1. CHILDREN'S TYLENOL 160 MG PER 5 ML MCNEIL-PPC, INC. [Suspect]
     Indication: EAR INFECTION
     Dosage: 1 TSP 2 TIMES A DAY PO
     Route: 048
     Dates: start: 20100409, end: 20100413

REACTIONS (2)
  - DIARRHOEA [None]
  - VOMITING [None]
